FAERS Safety Report 20336820 (Version 2)
Quarter: 2022Q1

REPORT INFORMATION
  Report Type: Spontaneous
  Country: US (occurrence: US)
  Receive Date: 20220114
  Receipt Date: 20220223
  Transmission Date: 20220423
  Serious: Yes (Other)
  Sender: FDA-Public Use
  Company Number: US-BIOMARINAP-US-2022-140751

PATIENT
  Age: 15 Year

DRUGS (1)
  1. LARONIDASE [Suspect]
     Active Substance: LARONIDASE
     Indication: Mucopolysaccharidosis I
     Dosage: 26.1 MILLIGRAM, QW
     Route: 042
     Dates: start: 20090803

REACTIONS (2)
  - Developmental hip dysplasia [Not Recovered/Not Resolved]
  - Neutralising antibodies negative [Unknown]
